FAERS Safety Report 11256223 (Version 1)
Quarter: 2015Q3

REPORT INFORMATION
  Report Type: Spontaneous
  Country: KR (occurrence: KR)
  Receive Date: 20150709
  Receipt Date: 20150709
  Transmission Date: 20151125
  Serious: Yes (Death)
  Sender: FDA-Public Use
  Company Number: KR-MERCK-1506KOR015440

PATIENT
  Age: 49 Year
  Sex: Male

DRUGS (13)
  1. IMIPENEM AND CILASTATIN [Suspect]
     Active Substance: CILASTATIN SODIUM\IMIPENEM
     Indication: FEBRILE NEUTROPENIA
     Dosage: UNK
     Dates: start: 20110607
  2. PREDNISONE. [Concomitant]
     Active Substance: PREDNISONE
     Indication: MYELOFIBROSIS
     Dosage: 10 MG, QD
     Route: 048
     Dates: start: 2010
  3. BUSULFAN [Concomitant]
     Active Substance: BUSULFAN
     Indication: BONE MARROW CONDITIONING REGIMEN
     Dosage: 3.2 MG/KG, UNK
  4. CASPOFUNGIN ACETATE [Suspect]
     Active Substance: CASPOFUNGIN ACETATE
     Dosage: 50 MG, QD
     Dates: start: 20110615, end: 20110622
  5. DANAZOL. [Concomitant]
     Active Substance: DANAZOL
     Indication: MYELOFIBROSIS
     Dosage: UNK
     Dates: start: 2010
  6. FLUDARABINE PHOSPHATE. [Concomitant]
     Active Substance: FLUDARABINE PHOSPHATE
     Indication: BONE MARROW CONDITIONING REGIMEN
     Dosage: 30 MG/M2, UNK
  7. CYCLOSPORINE. [Concomitant]
     Active Substance: CYCLOSPORINE
     Indication: PROPHYLAXIS AGAINST GRAFT VERSUS HOST DISEASE
     Dosage: UNK
     Dates: start: 20110601
  8. HYDROXYUREA. [Concomitant]
     Active Substance: HYDROXYUREA
     Indication: POLYCYTHAEMIA VERA
     Dosage: UNK
     Dates: start: 2003
  9. CEFEPIME [Concomitant]
     Active Substance: CEFEPIME HYDROCHLORIDE
     Indication: FEBRILE NEUTROPENIA
     Dosage: UNK
     Dates: start: 20110604, end: 20110607
  10. THALIDOMIDE [Concomitant]
     Active Substance: THALIDOMIDE
     Indication: MYELOFIBROSIS
     Dosage: UNK
     Dates: start: 2010
  11. VANCOMYCIN [Concomitant]
     Active Substance: VANCOMYCIN
     Indication: FEBRILE NEUTROPENIA
     Dosage: UNK
     Dates: start: 20110610, end: 20110624
  12. CASPOFUNGIN ACETATE [Suspect]
     Active Substance: CASPOFUNGIN ACETATE
     Indication: ANTIFUNGAL PROPHYLAXIS
     Dosage: 70 MG, ON THE FIRST DAY
     Dates: start: 20110614, end: 20110614
  13. FLUCONAZOLE. [Concomitant]
     Active Substance: FLUCONAZOLE
     Indication: ANTIFUNGAL PROPHYLAXIS
     Dosage: 100 MG, QD
     Dates: start: 20110602, end: 20110614

REACTIONS (2)
  - Death [Fatal]
  - Drug ineffective [Not Recovered/Not Resolved]

NARRATIVE: CASE EVENT DATE: 20110622
